FAERS Safety Report 4501233-6 (Version None)
Quarter: 2004Q3

REPORT INFORMATION
  Report Type: 
  Country: None (occurrence: None)
  Receive Date: 20040927
  Receipt Date: 20040824
  Transmission Date: 20050211
  Serious: No
  Sender: FDA-Public Use
  Company Number: USA040876301

PATIENT
  Age: 4 Year
  Sex: Female

DRUGS (1)
  1. STRATTERA [Suspect]
     Dosage: 25 MG DAY
     Route: 048
     Dates: start: 20040101

REACTIONS (2)
  - DYSGEUSIA [None]
  - WEIGHT DECREASED [None]
